FAERS Safety Report 15845356 (Version 1)
Quarter: 2019Q1

REPORT INFORMATION
  Report Type: Spontaneous
  Country: CA (occurrence: CA)
  Receive Date: 20190119
  Receipt Date: 20190119
  Transmission Date: 20190417
  Serious: Yes (Other)
  Sender: FDA-Public Use
  Company Number: CA-MICRO LABS LIMITED-ML2019-00056

PATIENT
  Age: 55 Year
  Sex: Female

DRUGS (2)
  1. SIMVASTATIN. [Suspect]
     Active Substance: SIMVASTATIN
     Indication: HYPERCHOLESTEROLAEMIA
     Route: 048
     Dates: start: 201704
  2. CLOBETASOL PROPIONATE. [Concomitant]
     Active Substance: CLOBETASOL PROPIONATE
     Indication: SKIN LESION
     Route: 061
     Dates: start: 2016

REACTIONS (2)
  - Lichenoid keratosis [Not Recovered/Not Resolved]
  - Fixed eruption [Not Recovered/Not Resolved]
